FAERS Safety Report 6419532-X (Version None)
Quarter: 2009Q4

REPORT INFORMATION
  Report Type: 
  Country: None (occurrence: None)
  Receive Date: 20091029
  Receipt Date: 20091019
  Transmission Date: 20100525
  Serious: Yes (Hospitalization)
  Sender: FDA-Public Use
  Company Number: DE-PFIZER INC-2009288828

PATIENT
  Age: 48 Year

DRUGS (7)
  1. DOXEPIN HCL [Suspect]
     Dosage: 50 MG, 1X/DAY
     Route: 048
  2. LORAZEPAM [Suspect]
     Dosage: 1 MG, 1X/DAY
     Route: 048
  3. AKINETON [Suspect]
     Dosage: UNK
     Route: 048
  4. CHLORPROTHIXENE [Suspect]
     Dosage: 450 MG, 1X/DAY
     Route: 048
  5. CIATYL [Suspect]
     Dosage: 50 MG, 1X/DAY
     Route: 048
  6. DOMINAL FORTE [Suspect]
     Dosage: 80 MG, 1X/DAY
     Route: 048
  7. RISPERDAL [Suspect]
     Dosage: 37.5 MG, UNK
     Route: 030
     Dates: end: 20091014

REACTIONS (4)
  - BLOOD SODIUM DECREASED [None]
  - COMA [None]
  - CONVULSION [None]
  - DYSPNOEA [None]
